FAERS Safety Report 7648555-8 (Version None)
Quarter: 2011Q3

REPORT INFORMATION
  Report Type: 
  Country: None (occurrence: None)
  Receive Date: 20110801
  Receipt Date: 20110720
  Transmission Date: 20111222
  Serious: Yes (Hospitalization)
  Sender: FDA-Public Use
  Company Number: PHFR2011GB02313

PATIENT
  Sex: Male
  Weight: 89.6 kg

DRUGS (8)
  1. SALICYLATES [Suspect]
  2. BENZODIAZEPINES [Suspect]
  3. TEMAZEPAM [Suspect]
  4. ASPIRIN [Suspect]
  5. DIAZEPAM [Concomitant]
     Indication: ANXIETY
     Dosage: 15 MG, DAILY
     Route: 048
  6. CLOZAPINE [Suspect]
     Indication: SCHIZOPHRENIA
     Dosage: 750 MG, DAILY
     Route: 048
     Dates: start: 20031118, end: 20110325
  7. CLOZAPINE [Suspect]
     Route: 048
     Dates: start: 20110406
  8. ACETAMINOPHEN [Suspect]

REACTIONS (4)
  - OVERDOSE [None]
  - LIVER FUNCTION TEST ABNORMAL [None]
  - ALANINE AMINOTRANSFERASE INCREASED [None]
  - MENTAL DISORDER [None]
